FAERS Safety Report 16613498 (Version 1)
Quarter: 2019Q3

REPORT INFORMATION
  Report Type: Spontaneous
  Country: US (occurrence: US)
  Receive Date: 20190608
  Receipt Date: 20190608
  Transmission Date: 20191004
  Serious: No
  Sender: FDA-Public Use
  Company Number: None

PATIENT
  Age: 57 Year
  Sex: Female

DRUGS (1)
  1. KISQALI [Suspect]
     Active Substance: RIBOCICLIB
     Route: 048
     Dates: start: 20190506

REACTIONS (4)
  - Fatigue [None]
  - Respiratory disorder [None]
  - Nausea [None]
  - Flank pain [None]

NARRATIVE: CASE EVENT DATE: 20190607
